FAERS Safety Report 4725862-X (Version None)
Quarter: 2005Q3

REPORT INFORMATION
  Report Type: 
  Country: None (occurrence: None)
  Receive Date: 20050725
  Receipt Date: 20050725
  Transmission Date: 20060218
  Serious: No
  Sender: FDA-Public Use
  Company Number: None

PATIENT
  Age: 68 Year
  Sex: Male
  Weight: 149.2334 kg

DRUGS (2)
  1. ZOLEDRONIC ACID 4MG/5ML NOVARTIS [Suspect]
     Indication: MULTIPLE MYELOMA
     Dosage: 4MG Q28D INTRAVENOUS
     Route: 042
  2. DEXAMETHASONE [Concomitant]

REACTIONS (2)
  - JAW DISORDER [None]
  - OSTEONECROSIS [None]
